FAERS Safety Report 12925874 (Version 1)
Quarter: 2016Q4

REPORT INFORMATION
  Report Type: Spontaneous
  Country: US (occurrence: US)
  Receive Date: 20161108
  Receipt Date: 20161108
  Transmission Date: 20170207
  Serious: No
  Sender: FDA-Public Use
  Company Number: US-SA-2016SA192157

PATIENT
  Age: 67 Year
  Sex: Female

DRUGS (3)
  1. ALIROCUMAB PREFILLED PEN [Concomitant]
     Active Substance: ALIROCUMAB
     Dates: end: 20160913
  2. PRALUENT [Suspect]
     Active Substance: ALIROCUMAB
     Route: 065
     Dates: end: 20160913
  3. METOPROLOL. [Concomitant]
     Active Substance: METOPROLOL
     Dosage: SINCE 10 YEARS

REACTIONS (4)
  - Sinusitis [Not Recovered/Not Resolved]
  - Blood pressure increased [Not Recovered/Not Resolved]
  - Sinus pain [Not Recovered/Not Resolved]
  - Cough [Not Recovered/Not Resolved]
